FAERS Safety Report 10731198 (Version 2)
Quarter: 2015Q1

REPORT INFORMATION
  Report Type: Report from Study
  Country: US (occurrence: US)
  Receive Date: 20150122
  Receipt Date: 20150205
  Transmission Date: 20150721
  Serious: Yes (Death)
  Sender: FDA-Public Use
  Company Number: US-EXELIXIS-CABO-14004921

PATIENT
  Age: 52 Year
  Sex: Male
  Weight: 77 kg

DRUGS (3)
  1. CABOZANTINIB [Suspect]
     Active Substance: CABOZANTINIB
     Indication: RENAL CANCER
     Dosage: 140 MG, QD
     Route: 048
     Dates: start: 20141030, end: 20141119
  2. BENICAR [Concomitant]
     Active Substance: OLMESARTAN MEDOXOMIL
  3. CABOZANTINIB [Suspect]
     Active Substance: CABOZANTINIB
     Dosage: 80 MG, QD
     Route: 048
     Dates: start: 20141120, end: 201412

REACTIONS (5)
  - Blood pressure increased [Unknown]
  - Malignant neoplasm progression [Fatal]
  - Off label use [Unknown]
  - Renal cancer [None]
  - Hair colour changes [Unknown]

NARRATIVE: CASE EVENT DATE: 20141103
